FAERS Safety Report 9432892 (Version 1)
Quarter: 2013Q3

REPORT INFORMATION
  Report Type: Report from Study
  Country: MX (occurrence: MX)
  Receive Date: 20130731
  Receipt Date: 20130731
  Transmission Date: 20140515
  Serious: Yes (Other)
  Sender: FDA-Public Use
  Company Number: PHHY2013MX080098

PATIENT
  Age: 61 Year
  Sex: Female

DRUGS (3)
  1. EXFORGE HCT [Suspect]
     Indication: HYPERTENSION
     Dosage: 1 DF(320 MG VALS/ 10 MG AMLO/ 25 MG HYDRO), DAILY
     Route: 048
     Dates: start: 201202, end: 201210
  2. EXFORGE HCT [Suspect]
     Dosage: 0.5 DF (HALF IN MORNING AND HALF IN THE EVENING)
     Route: 048
     Dates: start: 201210
  3. ASPIRIN PROTECT [Concomitant]
     Indication: INFARCTION
     Dosage: 1 DF, DAILY

REACTIONS (11)
  - Rheumatoid arthritis [Not Recovered/Not Resolved]
  - Fibromyalgia [Not Recovered/Not Resolved]
  - Diabetes mellitus [Not Recovered/Not Resolved]
  - Oesophagitis [Not Recovered/Not Resolved]
  - Blood triglycerides abnormal [Not Recovered/Not Resolved]
  - Thyroid disorder [Not Recovered/Not Resolved]
  - Colitis [Not Recovered/Not Resolved]
  - Wrong technique in drug usage process [Unknown]
  - Gastritis [Not Recovered/Not Resolved]
  - Dizziness [Not Recovered/Not Resolved]
  - Headache [Not Recovered/Not Resolved]
